FAERS Safety Report 7631303-5 (Version None)
Quarter: 2011Q3

REPORT INFORMATION
  Report Type: 
  Country: None (occurrence: None)
  Receive Date: 20110725
  Receipt Date: 20110719
  Transmission Date: 20111222
  Serious: Yes (Other)
  Sender: FDA-Public Use
  Company Number: NL-AMGEN-NLDSP2011027006

PATIENT
  Age: 62 Year
  Sex: Male
  Weight: 95 kg

DRUGS (2)
  1. DOVOBET [Concomitant]
     Dosage: 20 G, WEEKLY
  2. ENBREL [Suspect]
     Indication: PSORIATIC ARTHROPATHY
     Dosage: 50 MG, 2X/WEEK
     Dates: start: 20090801

REACTIONS (3)
  - DRUG INEFFECTIVE [None]
  - PSORIATIC ARTHROPATHY [None]
  - PSORIASIS [None]
